FAERS Safety Report 8913410 (Version 2)
Quarter: 2013Q1

REPORT INFORMATION
  Report Type: Spontaneous
  Country: GB (occurrence: None)
  Receive Date: 20121113
  Receipt Date: 20121214
  Transmission Date: 20140127
  Serious: Yes (Hospitalization, Other)
  Sender: FDA-Public Use
  Company Number: AUR-APL-2012-04786

PATIENT
  Age: 20 Year
  Sex: Male

DRUGS (2)
  1. RISPERIDONE (RISPERIDONE) [Suspect]
     Indication: SCHIZOPHRENIA, PARANOID TYPE
     Dosage: 1IN 1 D
     Route: 048
     Dates: start: 201108, end: 201111
  2. CANNABIS [Suspect]
     Dates: start: 201108

REACTIONS (15)
  - Apathy [None]
  - Lethargy [None]
  - Abnormal behaviour [None]
  - Hallucination, auditory [None]
  - Aggression [None]
  - Insomnia [None]
  - Hypophagia [None]
  - Weight decreased [None]
  - Feeling abnormal [None]
  - Decreased activity [None]
  - Irritability [None]
  - Treatment noncompliance [None]
  - Theft [None]
  - Paranoia [None]
  - Feeling abnormal [None]
